FAERS Safety Report 7324141-4 (Version None)
Quarter: 2011Q1

REPORT INFORMATION
  Report Type: 
  Country: None (occurrence: None)
  Receive Date: 20110301
  Receipt Date: 20110221
  Transmission Date: 20110831
  Serious: Yes (Other)
  Sender: FDA-Public Use
  Company Number: JP-MERCK-1102USA03348

PATIENT
  Age: 38 Year
  Sex: Female
  Weight: 53 kg

DRUGS (9)
  1. DOCARPAMINE [Concomitant]
     Route: 048
  2. DIGOXIN [Concomitant]
     Route: 048
  3. PEPCID [Suspect]
     Route: 048
  4. FUROSEMIDE [Concomitant]
     Route: 048
  5. SPIRONOLACTONE [Concomitant]
     Route: 048
  6. WARFARIN POTASSIUM [Concomitant]
     Route: 048
  7. ASPIRIN [Concomitant]
     Route: 048
  8. ENALAPRIL MALEATE [Concomitant]
     Route: 048
  9. PREDNISOLONE [Concomitant]
     Route: 048

REACTIONS (2)
  - APPENDICITIS [None]
  - BLOOD PRESSURE SYSTOLIC DECREASED [None]
